FAERS Safety Report 23214109 (Version 1)
Quarter: 2023Q4

REPORT INFORMATION
  Report Type: Spontaneous
  Country: FR (occurrence: FR)
  Receive Date: 20231121
  Receipt Date: 20231121
  Transmission Date: 20240110
  Serious: Yes (Other)
  Sender: FDA-Public Use
  Company Number: FR-ANIPHARMA-2023-FR-000191

PATIENT
  Age: 82 Year
  Sex: Male

DRUGS (4)
  1. CANDESARTAN CILEXETIL [Suspect]
     Active Substance: CANDESARTAN CILEXETIL
     Indication: Myocardial infarction
     Route: 065
  2. TICAGRELOR [Suspect]
     Active Substance: TICAGRELOR
     Dosage: 180 MG DAILY
     Route: 048
     Dates: start: 20230730
  3. PANTOPRAZOLE [Suspect]
     Active Substance: PANTOPRAZOLE
     Dosage: 20 MG DAILY
     Route: 048
  4. KARDEGIC [Suspect]
     Active Substance: ASPIRIN DL-LYSINE
     Dosage: 75 MG DAILY
     Route: 048

REACTIONS (3)
  - Gastrointestinal disorder [Unknown]
  - Epistaxis [Unknown]
  - Vertigo [Unknown]

NARRATIVE: CASE EVENT DATE: 20230905
